FAERS Safety Report 7920226-X (Version None)
Quarter: 2011Q4

REPORT INFORMATION
  Report Type: 
  Country: None (occurrence: None)
  Receive Date: 20111117
  Receipt Date: 20111114
  Transmission Date: 20120403
  Serious: Yes (Other)
  Sender: FDA-Public Use
  Company Number: US-PFIZER INC-2011279138

PATIENT
  Age: 55 Year
  Sex: Male
  Weight: 77.098 kg

DRUGS (2)
  1. LYRICA [Suspect]
     Dosage: 100 MG, 3X/DAY
  2. LYRICA [Suspect]
     Dosage: UNK
     Dates: start: 20110101

REACTIONS (4)
  - ANTICHOLINERGIC SYNDROME [None]
  - ANXIETY [None]
  - INSOMNIA [None]
  - MEMORY IMPAIRMENT [None]
